FAERS Safety Report 5809438-9 (Version None)
Quarter: 2008Q3

REPORT INFORMATION
  Report Type: 
  Country: None (occurrence: None)
  Receive Date: 20080709
  Receipt Date: 20080627
  Transmission Date: 20090109
  Serious: Yes (Hospitalization)
  Sender: FDA-Public Use
  Company Number: 001632

PATIENT
  Age: 58 Year
  Sex: Male

DRUGS (8)
  1. BUSULFEX [Suspect]
     Indication: STEM CELL TRANSPLANT
     Dosage: 15.2 ML, DAILY DOSE, INTRAVENOUS; 20 ML, DAILY DOSE; INTRAVENOUS; 40 ML; DAILY DOSE; INTRAVENOUS
     Route: 042
     Dates: start: 20070723, end: 20070723
  2. BUSULFEX [Suspect]
     Indication: STEM CELL TRANSPLANT
     Dosage: 15.2 ML, DAILY DOSE, INTRAVENOUS; 20 ML, DAILY DOSE; INTRAVENOUS; 40 ML; DAILY DOSE; INTRAVENOUS
     Route: 042
     Dates: start: 20070723, end: 20070723
  3. BUSULFEX [Suspect]
     Indication: STEM CELL TRANSPLANT
     Dosage: 15.2 ML, DAILY DOSE, INTRAVENOUS; 20 ML, DAILY DOSE; INTRAVENOUS; 40 ML; DAILY DOSE; INTRAVENOUS
     Route: 042
     Dates: start: 20070724, end: 20070726
  4. CYCLOPHOSPHAMIDE [Concomitant]
  5. VALPROATE SODIUM [Concomitant]
  6. NARTOGRASTIM (NARTOGRASTIM) [Concomitant]
  7. METHOTREXATE [Concomitant]
  8. CYCLOSPORINE [Concomitant]

REACTIONS (7)
  - ANOREXIA [None]
  - CYTOMEGALOVIRUS COLITIS [None]
  - DIARRHOEA [None]
  - FEBRILE NEUTROPENIA [None]
  - MALAISE [None]
  - NAUSEA [None]
  - VOMITING [None]
